FAERS Safety Report 7588413-0 (Version None)
Quarter: 2011Q2

REPORT INFORMATION
  Report Type: 
  Country: None (occurrence: None)
  Receive Date: 20110627
  Receipt Date: 20110620
  Transmission Date: 20111010
  Serious: Yes (Other)
  Sender: FDA-Public Use
  Company Number: 1000021728

PATIENT
  Age: 78 Year
  Sex: Male

DRUGS (2)
  1. BYSTOLIC [Suspect]
  2. METOPROLOL SUCCINATE [Concomitant]

REACTIONS (1)
  - CARDIAC FAILURE [None]
